FAERS Safety Report 11218936 (Version 2)
Quarter: 2017Q1

REPORT INFORMATION
  Report Type: Spontaneous
  Country: US (occurrence: US)
  Receive Date: 20150625
  Receipt Date: 20170328
  Transmission Date: 20170428
  Serious: Yes (Other)
  Sender: FDA-Public Use
  Company Number: US-ELI_LILLY_AND_COMPANY-US201506006833

PATIENT
  Sex: Male

DRUGS (17)
  1. CYMBALTA [Interacting]
     Active Substance: DULOXETINE HYDROCHLORIDE
     Dosage: 60 MG, QD
     Route: 048
  2. WELLBUTRIN [Concomitant]
     Active Substance: BUPROPION HYDROCHLORIDE
     Dosage: 300 MG, QD
     Route: 065
  3. TRAZODONE [Concomitant]
     Active Substance: TRAZODONE HYDROCHLORIDE
     Indication: INSOMNIA
     Dosage: 25 MG, PRN
     Route: 065
  4. OXYCONTIN [Interacting]
     Active Substance: OXYCODONE HYDROCHLORIDE
     Indication: PAIN
     Route: 065
  5. PROZAC [Concomitant]
     Active Substance: FLUOXETINE HYDROCHLORIDE
     Indication: MAJOR DEPRESSION
     Dosage: 20 MG, QD
     Route: 065
  6. ZOLOFT [Concomitant]
     Active Substance: SERTRALINE HYDROCHLORIDE
     Indication: MAJOR DEPRESSION
     Dosage: 25 MG, QD
     Route: 065
  7. EFFEXOR [Concomitant]
     Active Substance: VENLAFAXINE HYDROCHLORIDE
     Indication: MAJOR DEPRESSION
     Dosage: 75 MG, QD
     Route: 065
  8. ZOLOFT [Concomitant]
     Active Substance: SERTRALINE HYDROCHLORIDE
     Indication: GENERALISED ANXIETY DISORDER
     Dosage: 50 MG, QD
     Route: 065
  9. WELLBUTRIN [Concomitant]
     Active Substance: BUPROPION HYDROCHLORIDE
     Indication: MAJOR DEPRESSION
     Dosage: 150 MG, QD
     Route: 065
  10. CYMBALTA [Interacting]
     Active Substance: DULOXETINE HYDROCHLORIDE
     Indication: GENERALISED ANXIETY DISORDER
     Dosage: 60 MG, QD
     Route: 048
  11. CYMBALTA [Interacting]
     Active Substance: DULOXETINE HYDROCHLORIDE
     Dosage: 30 MG, QD
     Route: 048
  12. VALIUM [Concomitant]
     Active Substance: DIAZEPAM
     Indication: GENERALISED ANXIETY DISORDER
     Route: 065
  13. CYMBALTA [Interacting]
     Active Substance: DULOXETINE HYDROCHLORIDE
     Indication: PAIN
     Dosage: 90 MG, QD
     Route: 048
  14. OXYCODONE [Interacting]
     Active Substance: OXYCODONE
     Indication: PAIN
     Route: 065
  15. CYMBALTA [Suspect]
     Active Substance: DULOXETINE HYDROCHLORIDE
     Indication: MAJOR DEPRESSION
     Dosage: 30 MG, QD
     Route: 048
  16. MORPHINE [Interacting]
     Active Substance: MORPHINE
     Indication: PAIN
     Route: 065
  17. BUSPAR [Concomitant]
     Active Substance: BUSPIRONE HYDROCHLORIDE
     Indication: GENERALISED ANXIETY DISORDER
     Dosage: 15 MG, BID
     Route: 065

REACTIONS (33)
  - Hyperhidrosis [Unknown]
  - Drug withdrawal syndrome [Unknown]
  - Affect lability [Unknown]
  - Photosensitivity reaction [Unknown]
  - Confusional state [Unknown]
  - Dizziness [Unknown]
  - Sensory disturbance [Unknown]
  - Anxiety [Unknown]
  - Fatigue [Unknown]
  - Tinnitus [Unknown]
  - Urinary hesitation [Unknown]
  - Drug ineffective [Unknown]
  - Rash [Unknown]
  - Swelling face [Not Recovered/Not Resolved]
  - Dysphoria [Unknown]
  - Vertigo [Unknown]
  - Seizure [Unknown]
  - Skin irritation [Unknown]
  - Diarrhoea [Unknown]
  - Nausea [Unknown]
  - Urinary retention [Not Recovered/Not Resolved]
  - Agitation [Unknown]
  - Headache [Unknown]
  - Ocular icterus [Unknown]
  - Drug interaction [Unknown]
  - Mental disorder [Unknown]
  - Lethargy [Unknown]
  - Tremor [Unknown]
  - Suicidal ideation [Unknown]
  - Insomnia [Unknown]
  - Irritability [Unknown]
  - Libido decreased [Unknown]
  - Paraesthesia [Unknown]
